FAERS Safety Report 16694327 (Version 2)
Quarter: 2019Q3

REPORT INFORMATION
  Report Type: Spontaneous
  Country: US (occurrence: US)
  Receive Date: 20190812
  Receipt Date: 20190823
  Transmission Date: 20191004
  Serious: Yes (Other)
  Sender: FDA-Public Use
  Company Number: US-BAYER-2019-146956

PATIENT
  Age: 53 Year
  Sex: Female
  Weight: 85.3 kg

DRUGS (5)
  1. SPIRULINA SPP. [Concomitant]
  2. ESTRADIOL. [Suspect]
     Active Substance: ESTRADIOL
     Indication: MENOPAUSAL SYMPTOMS
     Dosage: 1 DF, BIW
     Route: 062
     Dates: start: 20190421, end: 201907
  3. PROGESTERONE. [Suspect]
     Active Substance: PROGESTERONE
     Dosage: 1 DF, QD
     Dates: start: 20190421, end: 201907
  4. VITAMINS NOS [Concomitant]
     Active Substance: VITAMINS
  5. IMVEXXY [Suspect]
     Active Substance: ESTRADIOL
     Dosage: UNK
     Route: 067
     Dates: start: 20190421, end: 20190616

REACTIONS (6)
  - Paraesthesia oral [Recovering/Resolving]
  - White matter lesion [None]
  - Muscular weakness [Recovering/Resolving]
  - Feeling hot [Recovered/Resolved]
  - Hypoaesthesia [Not Recovered/Not Resolved]
  - Swollen tongue [None]

NARRATIVE: CASE EVENT DATE: 201906
